FAERS Safety Report 9752180 (Version 2)
Quarter: 2013Q4

REPORT INFORMATION
  Report Type: Spontaneous
  Country: ES (occurrence: None)
  Receive Date: 20131211
  Receipt Date: 20131220
  Transmission Date: 20140711
  Serious: Yes (Hospitalization)
  Sender: FDA-Public Use
  Company Number: AUR-APL-2013-10169

PATIENT
  Age: 73 Year
  Sex: Female

DRUGS (5)
  1. ALENDRONIC ACID [Suspect]
     Indication: BONE DENSITY ABNORMAL
     Dosage: (70 MG, 1 IN 1 WK)
     Dates: start: 200206
  2. FOSAMAX [Suspect]
     Indication: BONE DENSITY ABNORMAL
     Dosage: (10 MG, 1 IN 1 D)
     Dates: start: 199610
  3. CALCIUM CARBONATE [Concomitant]
  4. CALCIUM GLUCONATE [Concomitant]
  5. VITAMIN D (ERGOCALCIFEROL) [Concomitant]

REACTIONS (9)
  - Femur fracture [None]
  - Discomfort [None]
  - Exostosis [None]
  - Pathological fracture [None]
  - Osteolysis [None]
  - Pain in extremity [None]
  - Exostosis [None]
  - Osteoarthritis [None]
  - Atypical fracture [None]
